FAERS Safety Report 12255771 (Version 3)
Quarter: 2016Q2

REPORT INFORMATION
  Report Type: Report from Study
  Country: JP (occurrence: JP)
  Receive Date: 20160412
  Receipt Date: 20160607
  Transmission Date: 20160815
  Serious: Yes (Death)
  Sender: FDA-Public Use
  Company Number: JP-ROCHE-631088

PATIENT
  Age: 8 Year
  Sex: Female

DRUGS (11)
  1. TOBRACIN [Concomitant]
     Active Substance: TOBRAMYCIN
     Indication: C-REACTIVE PROTEIN INCREASED
  2. ZOVIRAX [Concomitant]
     Active Substance: ACYCLOVIR
     Indication: PROPHYLAXIS
     Route: 042
     Dates: start: 20090213, end: 20090306
  3. TOBRACIN [Concomitant]
     Active Substance: TOBRAMYCIN
     Indication: PYREXIA
     Route: 042
     Dates: start: 20090213, end: 20090224
  4. ALKERAN [Concomitant]
     Active Substance: MELPHALAN
     Indication: PROPHYLAXIS AGAINST TRANSPLANT REJECTION
     Route: 065
     Dates: start: 20090214, end: 20090215
  5. RITUXIMAB [Suspect]
     Active Substance: RITUXIMAB
     Indication: EPSTEIN-BARR VIRUS ASSOCIATED LYMPHOPROLIFERATIVE DISORDER
     Dosage: 330 MG, SINGLE
     Route: 042
  6. DECADRON [Concomitant]
     Active Substance: DEXAMETHASONE
     Indication: PROPHYLAXIS
     Route: 065
     Dates: start: 20090212, end: 20090215
  7. CARBENIN [Concomitant]
     Active Substance: BETAMIPRON\PANIPENEM
     Indication: PYREXIA
     Route: 042
     Dates: start: 20090213, end: 20090306
  8. RITUXIMAB [Suspect]
     Active Substance: RITUXIMAB
     Indication: ACUTE LYMPHOCYTIC LEUKAEMIA
  9. CARBENIN [Concomitant]
     Active Substance: BETAMIPRON\PANIPENEM
     Indication: C-REACTIVE PROTEIN INCREASED
  10. THYMOGLOBULINE [Concomitant]
     Active Substance: LAPINE T-LYMPHOCYTE IMMUNE GLOBULIN
     Indication: PROPHYLAXIS AGAINST TRANSPLANT REJECTION
     Route: 065
     Dates: start: 20090214, end: 20090215
  11. ATARAX-P [Concomitant]
     Active Substance: HYDROXYZINE HYDROCHLORIDE
     Indication: PROPHYLAXIS
     Route: 065
     Dates: start: 20090214, end: 20090215

REACTIONS (2)
  - Multiple organ dysfunction syndrome [Fatal]
  - Infusion related reaction [Fatal]

NARRATIVE: CASE EVENT DATE: 20090329
